FAERS Safety Report 8889820 (Version 3)
Quarter: 2013Q1

REPORT INFORMATION
  Report Type: Spontaneous
  Country: NZ (occurrence: None)
  Receive Date: 20121031
  Receipt Date: 20130130
  Transmission Date: 20140127
  Serious: Yes (Hospitalization)
  Sender: FDA-Public Use
  Company Number: 2012AP003542

PATIENT
  Age: 83 Year
  Sex: Male

DRUGS (9)
  1. ALENDRONIC ACID [Suspect]
     Indication: PRODUCT USED FOR UNKNOWN INDICATION
  2. ALENDRONIC ACID [Suspect]
  3. PREDNISONE [Suspect]
     Route: 048
  4. PREDNISONE [Suspect]
     Route: 048
  5. METHOTREXATE (METHOTREXATE) [Suspect]
     Route: 048
  6. METHOTREXATE (METHOTREXATE) [Suspect]
     Route: 048
  7. OMEPRAZOLE [Concomitant]
  8. FOLIC ACID [Concomitant]
  9. PARACETAMOL [Concomitant]

REACTIONS (8)
  - Oesophageal ulcer [None]
  - Neutrophilia [None]
  - Monocytosis [None]
  - Fatigue [None]
  - Retching [None]
  - Rash pruritic [None]
  - Rash erythematous [None]
  - Weight decreased [None]
